FAERS Safety Report 5512651-1 (Version None)
Quarter: 2007Q4

REPORT INFORMATION
  Report Type: 
  Country: None (occurrence: None)
  Receive Date: 20071108
  Receipt Date: 20071108
  Transmission Date: 20080405
  Serious: Yes (Life-Threatening, Hospitalization)
  Sender: FDA-Public Use
  Company Number: None

PATIENT
  Age: 39 Year
  Sex: Male
  Weight: 147.419 kg

DRUGS (1)
  1. PROVENTIL-HFA [Suspect]
     Indication: ASTHMA
     Dosage: 100MCG 15+ DAILY INHAL 6 MONTHS C NO RESULTS
     Route: 055
     Dates: start: 20070401, end: 20071105

REACTIONS (1)
  - DRUG INEFFECTIVE [None]
